FAERS Safety Report 24769410 (Version 1)
Quarter: 2024Q4

REPORT INFORMATION
  Report Type: Spontaneous
  Country: CN (occurrence: CN)
  Receive Date: 20241224
  Receipt Date: 20241224
  Transmission Date: 20250114
  Serious: Yes (Other)
  Sender: ROCHE
  Company Number: CN-002147023-NVSC2024CN240318

PATIENT

DRUGS (2)
  1. RANIBIZUMAB [Suspect]
     Active Substance: RANIBIZUMAB
     Indication: Retinal vein occlusion
     Dosage: UNK (INJECT)
     Route: 065
  2. RANIBIZUMAB [Suspect]
     Active Substance: RANIBIZUMAB
     Indication: Macular oedema

REACTIONS (8)
  - Macular oedema [Unknown]
  - Retinal haemorrhage [Unknown]
  - Visual acuity reduced [Recovering/Resolving]
  - Depressed mood [Recovering/Resolving]
  - Chest discomfort [Recovering/Resolving]
  - Tongue erythema [Unknown]
  - Tongue coated [Unknown]
  - Abdominal distension [Recovering/Resolving]
